FAERS Safety Report 13839224 (Version 2)
Quarter: 2017Q4

REPORT INFORMATION
  Report Type: Spontaneous
  Country: GB (occurrence: GB)
  Receive Date: 20170807
  Receipt Date: 20171010
  Transmission Date: 20180320
  Serious: Yes (Life-Threatening, Hospitalization, Disabling)
  Sender: FDA-Public Use
  Company Number: GB-TEVA-792156ACC

PATIENT
  Age: 42 Year
  Sex: Male
  Weight: 79.38 kg

DRUGS (2)
  1. DIAZEPAM. [Suspect]
     Active Substance: DIAZEPAM
     Indication: POOR QUALITY SLEEP
     Dosage: 60 MILLIGRAM DAILY;
     Route: 048
     Dates: start: 2003, end: 20120518
  2. GENERICS UK ZOPICLONE [Suspect]
     Active Substance: ZOPICLONE
     Indication: POOR QUALITY SLEEP
     Dosage: 15 MILLIGRAM DAILY;
     Route: 048
     Dates: start: 2003, end: 20120518

REACTIONS (36)
  - Rectal haemorrhage [Unknown]
  - Parosmia [Unknown]
  - Amnesia [Unknown]
  - Tinnitus [Unknown]
  - Dermatitis [Unknown]
  - Feeling of body temperature change [Unknown]
  - Paraesthesia [Unknown]
  - Facial paralysis [Unknown]
  - Haematochezia [Unknown]
  - Eye pain [Unknown]
  - Auditory disorder [Unknown]
  - Head discomfort [Unknown]
  - Dysarthria [Unknown]
  - Alopecia [Unknown]
  - Rhinitis [Unknown]
  - Drug dose titration not performed [Unknown]
  - Visual impairment [Unknown]
  - Hypogeusia [Unknown]
  - Tooth disorder [Unknown]
  - Polyp [Unknown]
  - Withdrawal syndrome [Not Recovered/Not Resolved]
  - Testicular mass [Unknown]
  - Gastrointestinal disorder [Unknown]
  - Hallucination [Unknown]
  - Dysphagia [Unknown]
  - Psoriasis [Unknown]
  - Facial spasm [Unknown]
  - Pernicious anaemia [Unknown]
  - Chromaturia [Unknown]
  - Headache [Unknown]
  - Muscle spasms [Unknown]
  - Musculoskeletal pain [Unknown]
  - Temporomandibular joint syndrome [Unknown]
  - Fatigue [Unknown]
  - Sinusitis [Unknown]
  - Vertigo [Unknown]

NARRATIVE: CASE EVENT DATE: 2011
